FAERS Safety Report 8167622-6 (Version None)
Quarter: 2012Q1

REPORT INFORMATION
  Report Type: 
  Country: None (occurrence: None)
  Receive Date: 20120227
  Receipt Date: 20120224
  Transmission Date: 20120608
  Serious: Yes (Hospitalization, Other)
  Sender: FDA-Public Use
  Company Number: US-PFIZER INC-2011186335

PATIENT
  Sex: Female
  Weight: 104 kg

DRUGS (9)
  1. LYRICA [Suspect]
     Indication: FIBROMYALGIA
     Dosage: 150 MG, 3X/DAY
     Route: 048
     Dates: end: 20120201
  2. ZOLOFT [Concomitant]
     Indication: DEPRESSION
     Dosage: 125 MG, DAILY
  3. PROVENTIL [Concomitant]
     Indication: ASTHMA
     Dosage: UNK
  4. CHANTIX [Concomitant]
     Indication: SMOKING CESSATION THERAPY
     Dosage: 1 MG, 2X/DAY
     Route: 048
  5. ZOLOFT [Concomitant]
     Indication: ANXIETY
  6. WELLBUTRIN [Concomitant]
     Indication: ANXIETY
  7. GEODON [Suspect]
     Dosage: UNK
     Dates: start: 20060101
  8. WELLBUTRIN [Concomitant]
     Indication: DEPRESSION
     Dosage: 100 MG, DAILY
  9. ADVAIR DISKUS 100/50 [Concomitant]
     Indication: ASTHMA
     Dosage: 150 MG, UNK

REACTIONS (6)
  - HAEMORRHOIDS [None]
  - VAGINAL PROLAPSE [None]
  - CARPAL TUNNEL DECOMPRESSION [None]
  - PRECANCEROUS CELLS PRESENT [None]
  - INTESTINAL PROLAPSE [None]
  - PAIN [None]
